FAERS Safety Report 6899773-8 (Version None)
Quarter: 2010Q3

REPORT INFORMATION
  Report Type: 
  Country: None (occurrence: None)
  Receive Date: 20100803
  Receipt Date: 20070829
  Transmission Date: 20110219
  Serious: No
  Sender: FDA-Public Use
  Company Number: US-PFIZER INC-2007056081

PATIENT
  Sex: Female
  Weight: 63.5 kg

DRUGS (6)
  1. LYRICA [Suspect]
     Indication: PROCEDURAL PAIN
     Dates: start: 20070705
  2. CELEBREX [Concomitant]
  3. ONDANSETRON [Concomitant]
  4. CEPHALEXIN [Concomitant]
  5. METHOCARBAMOL [Concomitant]
  6. DRUG, UNSPECIFIED [Concomitant]

REACTIONS (2)
  - ABDOMINAL DISCOMFORT [None]
  - ABDOMINAL DISTENSION [None]
